FAERS Safety Report 8587014-5 (Version None)
Quarter: 2012Q3

REPORT INFORMATION
  Report Type: 
  Country: None (occurrence: None)
  Receive Date: 20120810
  Receipt Date: 20120605
  Transmission Date: 20120928
  Serious: No
  Sender: FDA-Public Use
  Company Number: US-009507513-2012SP025142

PATIENT

DRUGS (6)
  1. CHONDROITIN [Concomitant]
     Indication: ARTHRITIS
     Dosage: UNK, UNKNOWN
  2. MIRALAX [Suspect]
     Indication: PRODUCT USED FOR UNKNOWN INDICATION
     Dosage: UNK UNK, UNKNOWN
     Route: 048
     Dates: start: 20010101, end: 20120101
  3. GLUCOSAMINE [Concomitant]
     Indication: ARTHRITIS
     Dosage: UNK, UNKNOWN
  4. XANTHOPHYLL [Concomitant]
     Indication: ARTHRITIS
     Dosage: UNK, UNKNOWN
  5. VITAMIN B (UNSPECIFIED) [Concomitant]
     Indication: ARTHRITIS
     Dosage: UNK, UNKNOWN
  6. MIRALAX [Suspect]
     Indication: MEDICAL OBSERVATION

REACTIONS (1)
  - DRUG EFFECT DECREASED [None]
